FAERS Safety Report 15311076 (Version 1)
Quarter: 2018Q3

REPORT INFORMATION
  Report Type: Spontaneous
  Country: FR (occurrence: FR)
  Receive Date: 20180823
  Receipt Date: 20180823
  Transmission Date: 20181010
  Serious: Yes (Death, Hospitalization)
  Sender: FDA-Public Use
  Company Number: FR-ASTRAZENECA-2018SF04209

PATIENT
  Age: 71 Year
  Sex: Male
  Weight: 95 kg

DRUGS (13)
  1. LANSOPRAZOLE. [Concomitant]
     Active Substance: LANSOPRAZOLE
     Route: 048
  2. LYRICA [Concomitant]
     Active Substance: PREGABALIN
     Route: 048
  3. COUMADINE [Interacting]
     Active Substance: WARFARIN SODIUM
     Route: 048
     Dates: end: 20180506
  4. CRESTOR [Concomitant]
     Active Substance: ROSUVASTATIN CALCIUM
     Route: 048
  5. BRILIQUE [Suspect]
     Active Substance: TICAGRELOR
     Route: 048
     Dates: start: 20180507, end: 20180509
  6. AUGMENTIN [Suspect]
     Active Substance: AMOXICILLIN\CLAVULANATE POTASSIUM
     Indication: LUNG DISORDER
     Dosage: 1 G/200 MG DAILY
     Route: 042
     Dates: start: 20180507, end: 20180509
  7. ALDACTONE [Concomitant]
     Active Substance: SPIRONOLACTONE
     Route: 048
  8. KARDEGIC [Interacting]
     Active Substance: ASPIRIN DL-LYSINE
     Route: 048
     Dates: start: 20180507, end: 20180509
  9. ATENOLOL. [Concomitant]
     Active Substance: ATENOLOL
     Route: 048
  10. PARACETAMOL [Concomitant]
     Active Substance: ACETAMINOPHEN
     Route: 048
  11. LISINOPRIL. [Concomitant]
     Active Substance: LISINOPRIL
     Route: 048
  12. KAYEXALATE [Concomitant]
     Active Substance: SODIUM POLYSTYRENE SULFONATE
     Route: 048
  13. TRINITRINE MYLAN [Concomitant]
     Dosage: 10MG/24
     Route: 048

REACTIONS (2)
  - Cerebral haemorrhage [Fatal]
  - Melaena [Fatal]

NARRATIVE: CASE EVENT DATE: 20180508
